FAERS Safety Report 9383765 (Version 3)
Quarter: 2013Q4

REPORT INFORMATION
  Report Type: Spontaneous
  Country: GB (occurrence: GB)
  Receive Date: 20130704
  Receipt Date: 20131105
  Transmission Date: 20140711
  Serious: Yes (Other)
  Sender: FDA-Public Use
  Company Number: GB-AMGEN-GBRSP2013046095

PATIENT
  Sex: Female
  Weight: 112 kg

DRUGS (1)
  1. NPLATE [Suspect]
     Indication: PRODUCT USED FOR UNKNOWN INDICATION
     Dosage: 8 MUG/KG, UNK
     Route: 065

REACTIONS (2)
  - Therapeutic response decreased [Unknown]
  - Platelet count decreased [Unknown]
